FAERS Safety Report 4699350-3 (Version None)
Quarter: 2005Q2

REPORT INFORMATION
  Report Type: 
  Country: None (occurrence: None)
  Receive Date: 20050624
  Receipt Date: 20050620
  Transmission Date: 20051028
  Serious: Yes (Hospitalization)
  Sender: FDA-Public Use
  Company Number: FR-SANOFI-SYNTHELABO-A02200501611

PATIENT
  Age: 62 Year
  Sex: Female

DRUGS (3)
  1. ELOXATIN [Suspect]
     Indication: COLON CANCER
     Route: 042
     Dates: start: 20050606, end: 20050606
  2. FLUOROURACIL [Concomitant]
     Indication: COLON CANCER
     Route: 042
     Dates: start: 20050512
  3. FLUOROURACIL [Concomitant]
     Route: 042
     Dates: start: 20050516, end: 20050518

REACTIONS (2)
  - LARYNGOSPASM [None]
  - TREMOR [None]
